FAERS Safety Report 8470187-2 (Version None)
Quarter: 2012Q2

REPORT INFORMATION
  Report Type: 
  Country: None (occurrence: None)
  Receive Date: 20120621
  Receipt Date: 20120621
  Transmission Date: 20120825
  Serious: Yes (Other)
  Sender: FDA-Public Use
  Company Number: None

PATIENT
  Sex: Female

DRUGS (3)
  1. IBUPROFEN (ADVIL) [Concomitant]
  2. PREDNISONE [Suspect]
     Indication: MUSCLE SPASMS
     Dosage: 20MG 2 TIMES A DAY PO
     Route: 048
     Dates: start: 20120612, end: 20120616
  3. FLEXOVILE [Concomitant]

REACTIONS (3)
  - JOINT SWELLING [None]
  - OEDEMA PERIPHERAL [None]
  - BALANCE DISORDER [None]
